FAERS Safety Report 22587785 (Version 1)
Quarter: 2023Q2

REPORT INFORMATION
  Report Type: Spontaneous
  Country: IN (occurrence: IN)
  Receive Date: 20230612
  Receipt Date: 20230612
  Transmission Date: 20230722
  Serious: Yes (Death, Hospitalization, Other)
  Sender: FDA-Public Use
  Company Number: IN-NOVITIUMPHARMA-2023INNVP00882

PATIENT
  Age: 20 Year
  Sex: Female

DRUGS (1)
  1. DAPSONE [Suspect]
     Active Substance: DAPSONE
     Indication: Product used for unknown indication

REACTIONS (4)
  - Brain injury [Fatal]
  - Methaemoglobinaemia [Fatal]
  - Toxicity to various agents [Fatal]
  - Overdose [Fatal]
